FAERS Safety Report 10265102 (Version 1)
Quarter: 2014Q2

REPORT INFORMATION
  Report Type: Spontaneous
  Country: US (occurrence: None)
  Receive Date: 20140625
  Receipt Date: 20140625
  Transmission Date: 20141212
  Serious: Yes (Hospitalization)
  Sender: FDA-Public Use
  Company Number: None

PATIENT
  Age: 60 Year
  Sex: Female
  Weight: 87.2 kg

DRUGS (3)
  1. LENALIDOMIDE [Suspect]
     Dates: end: 20140602
  2. DEXAMETHASONE [Suspect]
     Dates: end: 20140531
  3. PS-341 (BORTEZOMIB; VELCADE) [Suspect]
     Dosage: 10 MG.
     Dates: end: 20140530

REACTIONS (8)
  - Dyspnoea [None]
  - Fatigue [None]
  - Headache [None]
  - Vertigo positional [None]
  - Haemoglobin decreased [None]
  - Heart rate irregular [None]
  - Pleural effusion [None]
  - Pulmonary mass [None]
